FAERS Safety Report 20736733 (Version 1)
Quarter: 2022Q2

REPORT INFORMATION
  Report Type: Spontaneous
  Country: US (occurrence: US)
  Receive Date: 20220421
  Receipt Date: 20220421
  Transmission Date: 20220721
  Serious: No
  Sender: FDA-Public Use
  Company Number: US-Kiniksa Pharmaceuticals Ltd.-2021KPU000379

PATIENT
  Age: 69 Year
  Sex: Female
  Weight: 63.560 kg

DRUGS (4)
  1. ARCALYST [Suspect]
     Active Substance: RILONACEPT
     Indication: Pericarditis
     Route: 058
     Dates: start: 2021
  2. PANTOPRAZOLE [Concomitant]
     Active Substance: PANTOPRAZOLE
     Indication: Product used for unknown indication
     Route: 048
  3. LIPITOR [Concomitant]
     Active Substance: ATORVASTATIN CALCIUM
     Indication: Product used for unknown indication
     Route: 048
  4. PREDNISONE [Concomitant]
     Active Substance: PREDNISONE
     Indication: Giant cell arteritis
     Route: 048

REACTIONS (2)
  - Medication error [None]
  - Fluid retention [None]

NARRATIVE: CASE EVENT DATE: 20210806
